FAERS Safety Report 4974553-9 (Version None)
Quarter: 2006Q1

REPORT INFORMATION
  Report Type: 
  Country: None (occurrence: None)
  Receive Date: 20060215
  Receipt Date: 20051123
  Transmission Date: 20060701
  Serious: No
  Sender: FDA-Public Use
  Company Number: PROG00203000197

PATIENT
  Age: 57 Year
  Sex: Female

DRUGS (6)
  1. PROGESTERONE [Suspect]
     Indication: HORMONE REPLACEMENT THERAPY
     Dosage: DAILY ORAL
     Route: 048
     Dates: end: 20001130
  2. DISULONE (DAPSONE) [Suspect]
     Indication: ILL-DEFINED DISORDER
     Dosage: SEE IMAGE
     Dates: start: 20000726, end: 20000911
  3. DISULONE (DAPSONE) [Suspect]
     Indication: ILL-DEFINED DISORDER
     Dosage: SEE IMAGE
     Dates: start: 20000912, end: 20001016
  4. DISULONE (DAPSONE) [Suspect]
     Indication: ILL-DEFINED DISORDER
     Dosage: SEE IMAGE
     Dates: start: 20001017, end: 20001130
  5. SULFASALAZINE [Concomitant]
  6. PROVAMES (ESTRADIOL) [Concomitant]

REACTIONS (1)
  - HEPATITIS [None]
